FAERS Safety Report 12562385 (Version 1)
Quarter: 2016Q3

REPORT INFORMATION
  Report Type: Spontaneous
  Country: US (occurrence: US)
  Receive Date: 20160715
  Receipt Date: 20160715
  Transmission Date: 20161109
  Serious: No
  Sender: FDA-Public Use
  Company Number: US-BEH-2016071209

PATIENT
  Age: 72 Year
  Sex: Female
  Weight: 65.76 kg

DRUGS (29)
  1. CIPROFLOXACIN. [Concomitant]
     Active Substance: CIPROFLOXACIN
  2. PREDNISONE. [Concomitant]
     Active Substance: PREDNISONE
  3. ACETAMINOPHEN. [Concomitant]
     Active Substance: ACETAMINOPHEN
  4. EPIPEN [Concomitant]
     Active Substance: EPINEPHRINE
  5. SINEMET [Concomitant]
     Active Substance: CARBIDOPA\LEVODOPA
  6. FLINTSTONES IRON [Concomitant]
  7. SOTALOL. [Concomitant]
     Active Substance: SOTALOL
  8. RESTORIL [Concomitant]
     Active Substance: TEMAZEPAM
  9. ZETIA [Concomitant]
     Active Substance: EZETIMIBE
  10. LANTUS [Concomitant]
     Active Substance: INSULIN GLARGINE
  11. WELCHOL [Concomitant]
     Active Substance: COLESEVELAM HYDROCHLORIDE
  12. VICTOZA [Concomitant]
     Active Substance: LIRAGLUTIDE
  13. AMARYL [Concomitant]
     Active Substance: GLIMEPIRIDE
  14. TRICOR                             /00090101/ [Concomitant]
     Active Substance: ADENOSINE
  15. GLUCOPHAGE [Concomitant]
     Active Substance: METFORMIN HYDROCHLORIDE
  16. NEXIUM [Concomitant]
     Active Substance: ESOMEPRAZOLE MAGNESIUM
  17. LMX                                /00033401/ [Concomitant]
  18. KEFLEX [Concomitant]
     Active Substance: CEPHALEXIN
  19. FEMRING [Concomitant]
     Active Substance: ESTRADIOL ACETATE
  20. HUMIRA [Concomitant]
     Active Substance: ADALIMUMAB
  21. HOMATROPINE METHYLBROMIDE\HYDROCODONE BITARTRATE [Concomitant]
     Active Substance: HOMATROPINE METHYLBROMIDE\HYDROCODONE BITARTRATE
  22. HIZENTRA [Suspect]
     Active Substance: HUMAN IMMUNOGLOBULIN G
     Indication: IMMUNODEFICIENCY COMMON VARIABLE
     Dosage: 12 G, QW
     Route: 058
  23. HUMALOG [Concomitant]
     Active Substance: INSULIN LISPRO
  24. FOLIC ACID. [Concomitant]
     Active Substance: FOLIC ACID
  25. DIPHENHYDRAMINE. [Concomitant]
     Active Substance: DIPHENHYDRAMINE
  26. ZITHROMAX [Concomitant]
     Active Substance: AZITHROMYCIN DIHYDRATE
  27. ALLEGRA [Concomitant]
     Active Substance: FEXOFENADINE HYDROCHLORIDE
  28. EFFEXOR XR [Concomitant]
     Active Substance: VENLAFAXINE HYDROCHLORIDE
  29. RITALIN [Concomitant]
     Active Substance: METHYLPHENIDATE HYDROCHLORIDE

REACTIONS (1)
  - Ear infection [Unknown]

NARRATIVE: CASE EVENT DATE: 201602
